FAERS Safety Report 5141589-7 (Version None)
Quarter: 2006Q4

REPORT INFORMATION
  Report Type: 
  Country: None (occurrence: None)
  Receive Date: 20061030
  Receipt Date: 20061030
  Transmission Date: 20070319
  Serious: Yes (Other)
  Sender: FDA-Public Use
  Company Number: None

PATIENT
  Sex: Female
  Weight: 95.2554 kg

DRUGS (4)
  1. ANGIOMAX [Suspect]
     Indication: ANTICOAGULANT THERAPY
     Dosage: SEE IMAGE
     Route: 042
     Dates: start: 20060426, end: 20060426
  2. ANGIOMAX [Suspect]
     Indication: INTRAOPERATIVE CARE
     Dosage: SEE IMAGE
     Route: 042
     Dates: start: 20060426, end: 20060426
  3. ANGIOMAX [Suspect]
     Indication: PERCUTANEOUS CORONARY INTERVENTION
     Dosage: SEE IMAGE
     Route: 042
     Dates: start: 20060426, end: 20060426
  4. INTEGRILIN [Suspect]
     Dosage: 8.5ML BOLUS/ 15ML/HR IV DRIP  X2/ 18HR
     Route: 041
     Dates: start: 20060426, end: 20060426

REACTIONS (1)
  - CORONARY ARTERY RESTENOSIS [None]
